FAERS Safety Report 10067974 (Version 2)
Quarter: 2014Q2

REPORT INFORMATION
  Report Type: Spontaneous
  Country: IT (occurrence: IT)
  Receive Date: 20140409
  Receipt Date: 20140606
  Transmission Date: 20141212
  Serious: Yes (Hospitalization)
  Sender: FDA-Public Use
  Company Number: IT-PFIZER INC-2014096374

PATIENT
  Age: 86 Year
  Sex: Female

DRUGS (9)
  1. TRIATEC [Suspect]
     Indication: HYPERTENSION
     Dosage: 2.5 MG, DAILY
     Route: 048
     Dates: start: 20140123, end: 20140212
  2. ALLOPURINOL [Interacting]
     Dosage: 100 MG, DAILY
     Route: 048
     Dates: start: 20130101, end: 20140212
  3. ACETYLSALICYLIC ACID [Concomitant]
     Dosage: UNK
  4. VENLAFAXINE [Concomitant]
     Dosage: UNK
  5. ATORVASTATIN [Concomitant]
     Dosage: UNK
     Dates: start: 20140123, end: 20140212
  6. LORAZEPAM [Concomitant]
     Dosage: UNK
  7. BRILIQUE [Concomitant]
     Dosage: UNK
     Dates: start: 20140212, end: 20140212
  8. LASIX [Concomitant]
     Dosage: UNK
  9. PANTORC [Concomitant]
     Dosage: UNK
     Dates: start: 20140123, end: 20140212

REACTIONS (6)
  - Drug interaction [Recovered/Resolved]
  - Lip oedema [Recovered/Resolved]
  - Choking sensation [Recovered/Resolved]
  - Tongue oedema [Recovered/Resolved]
  - Renal impairment [Recovered/Resolved]
  - Suffocation feeling [Recovered/Resolved]
